FAERS Safety Report 5623059-2 (Version None)
Quarter: 2008Q1

REPORT INFORMATION
  Report Type: 
  Country: None (occurrence: None)
  Receive Date: 20080212
  Receipt Date: 20080129
  Transmission Date: 20080703
  Serious: Yes (Hospitalization)
  Sender: FDA-Public Use
  Company Number: US-AMGEN-US262970

PATIENT
  Sex: Female
  Weight: 66.7 kg

DRUGS (4)
  1. NEUPOGEN [Suspect]
     Indication: NEUTROPENIA
     Dates: start: 20071101
  2. PEG-INTRON [Concomitant]
     Route: 058
     Dates: start: 20071012
  3. RIBAVIRIN [Concomitant]
     Route: 048
     Dates: start: 20071012
  4. LEVOXYL [Concomitant]
     Route: 065

REACTIONS (5)
  - CHEST PAIN [None]
  - COSTOCHONDRITIS [None]
  - DYSPEPSIA [None]
  - DYSPNOEA [None]
  - RED BLOOD CELL COUNT DECREASED [None]
